FAERS Safety Report 25057989 (Version 1)
Quarter: 2025Q1

REPORT INFORMATION
  Report Type: Spontaneous
  Country: DE (occurrence: DE)
  Receive Date: 20250310
  Receipt Date: 20250310
  Transmission Date: 20250409
  Serious: Yes (Other)
  Sender: SANDOZ
  Company Number: DE-AMGEN-DEUNI2018170192

PATIENT
  Sex: Female
  Weight: 64 kg

DRUGS (17)
  1. CARFILZOMIB [Suspect]
     Active Substance: CARFILZOMIB
     Route: 042
     Dates: start: 20180411
  2. CARFILZOMIB [Suspect]
     Active Substance: CARFILZOMIB
     Indication: Plasma cell myeloma
     Route: 042
  3. DEXAMETHASONE [Suspect]
     Active Substance: DEXAMETHASONE
     Route: 065
     Dates: start: 20180419, end: 20190704
  4. DEXAMETHASONE [Suspect]
     Active Substance: DEXAMETHASONE
     Indication: Plasma cell myeloma
     Route: 065
  5. LENALIDOMIDE [Suspect]
     Active Substance: LENALIDOMIDE
     Route: 065
  6. LENALIDOMIDE [Suspect]
     Active Substance: LENALIDOMIDE
     Indication: Plasma cell myeloma
     Route: 065
     Dates: start: 20180411, end: 20181115
  7. LENALIDOMIDE [Suspect]
     Active Substance: LENALIDOMIDE
     Route: 042
     Dates: start: 20180426
  8. Aciclovir ratiopharm [Concomitant]
     Indication: Prophylaxis
     Route: 065
     Dates: start: 20151102
  9. ASPIRIN [Concomitant]
     Active Substance: ASPIRIN
     Indication: Prophylaxis
     Route: 065
     Dates: start: 20151030
  10. LETROZOLE [Concomitant]
     Active Substance: LETROZOLE
     Indication: Prophylaxis
     Route: 065
     Dates: start: 20180118
  11. Loperamid heumann [Concomitant]
     Indication: Prophylaxis
     Route: 065
     Dates: start: 20180427
  12. LORAZEPAM [Concomitant]
     Active Substance: LORAZEPAM
     Indication: Product used for unknown indication
     Dosage: 2.5 MG, QD
     Route: 065
  13. POLYETHYLENE GLYCOLS [Concomitant]
     Active Substance: POLYETHYLENE GLYCOLS
     Indication: Prophylaxis
     Route: 065
     Dates: start: 20151029
  14. METAMIZOLE [Concomitant]
     Active Substance: METAMIZOLE
     Indication: Prophylaxis
     Route: 065
     Dates: start: 20151029
  15. Osteoplus [Concomitant]
     Indication: Prophylaxis
     Route: 065
     Dates: start: 20170914
  16. PANTOPRAZOLE SODIUM [Concomitant]
     Active Substance: PANTOPRAZOLE SODIUM
     Indication: Prophylaxis
     Route: 065
     Dates: start: 20171019
  17. ZOMETA [Concomitant]
     Active Substance: ZOLEDRONIC ACID
     Indication: Prophylaxis
     Route: 065
     Dates: start: 20180419

REACTIONS (1)
  - Neuropathy peripheral [Recovered/Resolved]

NARRATIVE: CASE EVENT DATE: 20181108
